FAERS Safety Report 19080494 (Version 1)
Quarter: 2021Q2

REPORT INFORMATION
  Report Type: Spontaneous
  Country: AU (occurrence: AU)
  Receive Date: 20210401
  Receipt Date: 20210401
  Transmission Date: 20210717
  Serious: Yes (Life-Threatening, Hospitalization)
  Sender: FDA-Public Use
  Company Number: AU-GENERIC HEALTH PTY. LTD.-2021-04004

PATIENT
  Age: 43 Year
  Sex: Female

DRUGS (10)
  1. FENTANYL. [Suspect]
     Active Substance: FENTANYL
     Indication: SEDATION
     Dosage: 75 MICROGRAM, SINGLE
     Route: 065
  2. PREDNISOLONE. [Suspect]
     Active Substance: PREDNISOLONE
     Indication: AUTOIMMUNE HEPATITIS
     Dosage: 5 MILLIGRAM, QD
     Route: 065
  3. ATROPINE. [Suspect]
     Active Substance: ATROPINE
     Indication: SEDATION
     Dosage: 600 MICROGRAM, SINGLE
     Route: 065
  4. EPINEPHRINE HYDROCHLORIDE;LIDOCAINE HYDROCHLORIDE [Suspect]
     Active Substance: EPINEPHRINE HYDROCHLORIDE\LIDOCAINE HYDROCHLORIDE
     Indication: INFILTRATION ANAESTHESIA
     Dosage: 15 MILLILITER, SINGLE?1% LIDOCAINE AND EPINEPHRINE IN RATIO 1:100000
     Route: 065
  5. DULOXETINE. [Suspect]
     Active Substance: DULOXETINE
     Indication: AUTOIMMUNE HEPATITIS
     Dosage: 60 MILLIGRAM, QD
     Route: 065
  6. METARAMINOL [Suspect]
     Active Substance: METARAMINOL
     Indication: BLOOD PRESSURE DECREASED
     Dosage: 0.5 MILLIGRAM?TWO BOLUSES
     Route: 042
  7. LIGNOCAINE [LIDOCAINE] [Suspect]
     Active Substance: LIDOCAINE
     Indication: SEDATION
     Dosage: 10 MILLIGRAM, SINGLE
     Route: 042
  8. LEVOTHYROXINE. [Suspect]
     Active Substance: LEVOTHYROXINE
     Indication: AUTOIMMUNE HEPATITIS
     Dosage: 100 MICROGRAM, QD
     Route: 065
  9. PROPOFOL. [Suspect]
     Active Substance: PROPOFOL
     Indication: SEDATION
     Dosage: 50 MILLIGRAM, SINGLE
     Route: 065
  10. ONDANSETRON [Suspect]
     Active Substance: ONDANSETRON
     Indication: SEDATION
     Dosage: 4 MILLIGRAM, SINGLE
     Route: 065

REACTIONS (2)
  - Stress cardiomyopathy [Recovering/Resolving]
  - Exposure during pregnancy [Unknown]
